FAERS Safety Report 7912623-3 (Version None)
Quarter: 2011Q4

REPORT INFORMATION
  Report Type: 
  Country: None (occurrence: None)
  Receive Date: 20111114
  Receipt Date: 20111104
  Transmission Date: 20120403
  Serious: Yes (Other)
  Sender: FDA-Public Use
  Company Number: IT-PFIZER INC-2011271437

PATIENT
  Age: 2 Year
  Sex: Male

DRUGS (7)
  1. VINCRISTINE SULFATE [Suspect]
     Indication: ACUTE LYMPHOCYTIC LEUKAEMIA
     Dosage: 0.75 MG, CYCLIC
     Route: 042
     Dates: start: 20110929, end: 20111020
  2. DOXORUBICIN HCL [Suspect]
     Indication: ACUTE LYMPHOCYTIC LEUKAEMIA
     Dosage: 15 MG, CYCLIC
     Route: 042
     Dates: start: 20110929, end: 20111020
  3. RANIDIL [Concomitant]
  4. DECADRON [Concomitant]
  5. ENALAPRIL MALEATE [Concomitant]
  6. ZOFRAN [Concomitant]
  7. CEDAX [Concomitant]

REACTIONS (2)
  - APATHY [None]
  - ASTHENIA [None]
